FAERS Safety Report 8510872-7 (Version None)
Quarter: 2012Q3

REPORT INFORMATION
  Report Type: 
  Country: None (occurrence: None)
  Receive Date: 20120716
  Receipt Date: 20120705
  Transmission Date: 20120928
  Serious: Yes (Hospitalization, Disabling)
  Sender: FDA-Public Use
  Company Number: US-009507513-1207USA002328

PATIENT

DRUGS (3)
  1. PEGASYS [Concomitant]
     Dosage: 180 MICROGRAM, QW
     Route: 058
     Dates: end: 20120429
  2. REBETOL [Suspect]
     Indication: HEPATITIS C
     Dosage: 1000 MG, QD
     Dates: end: 20120429
  3. VICTRELIS [Suspect]
     Indication: HEPATITIS C
     Dosage: 200 MG, TID
     Dates: end: 20120429

REACTIONS (4)
  - MUSCLE SPASMS [None]
  - DEHYDRATION [None]
  - ANAEMIA [None]
  - ASTHENIA [None]
